FAERS Safety Report 10737781 (Version 1)
Quarter: 2015Q1

REPORT INFORMATION
  Report Type: Spontaneous
  Country: CH (occurrence: None)
  Receive Date: 20150122
  Receipt Date: 20150122
  Transmission Date: 20150721
  Serious: Yes (Hospitalization)
  Sender: FDA-Public Use
  Company Number: 201500013

PATIENT
  Age: 72 Year
  Sex: Female

DRUGS (6)
  1. FERINJECT [Suspect]
     Active Substance: FERRIC CARBOXYMALTOSE
     Indication: ANAEMIA
     Route: 041
     Dates: start: 2014
  2. CYANCOBALAMIN (VITAMIN B12) [Concomitant]
  3. SALAZOPYRIN (SULFASALZINE) [Concomitant]
  4. COLECALCIFEROL [Concomitant]
     Active Substance: CHOLECALCIFEROL
  5. VENOFER [Suspect]
     Active Substance: IRON SUCROSE
     Indication: IRON DEFICIENCY
     Route: 041
     Dates: start: 2010, end: 2014
  6. VENOFER [Suspect]
     Active Substance: IRON SUCROSE
     Indication: SERUM FERRITIN DECREASED
     Route: 041
     Dates: start: 2010, end: 2014

REACTIONS (8)
  - No therapeutic response [None]
  - Hypokalaemia [None]
  - Hypocalcaemia [None]
  - Blood albumin decreased [None]
  - Hypophosphataemia [None]
  - Oedema peripheral [None]
  - Hypomagnesaemia [None]
  - Urine phosphorus increased [None]

NARRATIVE: CASE EVENT DATE: 2014
